FAERS Safety Report 16882174 (Version 1)
Quarter: 2019Q4

REPORT INFORMATION
  Report Type: Spontaneous
  Country: UA (occurrence: UA)
  Receive Date: 20191003
  Receipt Date: 20191003
  Transmission Date: 20200122
  Serious: Yes (Hospitalization, Other)
  Sender: FDA-Public Use
  Company Number: UA-GLAXOSMITHKLINE-UA2019EME176893

PATIENT

DRUGS (9)
  1. SALMETEROL [Suspect]
     Active Substance: SALMETEROL
     Indication: ASTHMA
     Dosage: UNK
  2. LERCANIDIPINE [Concomitant]
     Active Substance: LERCANIDIPINE
     Indication: PRODUCT USED FOR UNKNOWN INDICATION
     Dosage: UNK
  3. ASPIRIN. [Suspect]
     Active Substance: ASPIRIN
     Indication: PRODUCT USED FOR UNKNOWN INDICATION
     Dosage: UNK
  4. CLOPIDOGREL [Concomitant]
     Active Substance: CLOPIDOGREL BISULFATE
     Indication: PRODUCT USED FOR UNKNOWN INDICATION
     Dosage: UNK
  5. NEBIVOLOL. [Concomitant]
     Active Substance: NEBIVOLOL
     Indication: PRODUCT USED FOR UNKNOWN INDICATION
     Dosage: UNK
  6. IVABRADINE [Concomitant]
     Active Substance: IVABRADINE
     Indication: PRODUCT USED FOR UNKNOWN INDICATION
     Dosage: UNK
  7. SALMETEROL [Suspect]
     Active Substance: SALMETEROL
     Dosage: UNK
  8. EPLERENONE. [Concomitant]
     Active Substance: EPLERENONE
     Indication: PRODUCT USED FOR UNKNOWN INDICATION
     Dosage: UNK
  9. ATORVASTATIN [Concomitant]
     Active Substance: ATORVASTATIN
     Indication: PRODUCT USED FOR UNKNOWN INDICATION
     Dosage: UNK

REACTIONS (23)
  - Mechanical urticaria [Unknown]
  - Ventricular hypokinesia [Unknown]
  - Asthma [Unknown]
  - Hypochromic anaemia [Unknown]
  - Affect lability [Unknown]
  - Myocardial infarction [Unknown]
  - Angina pectoris [Unknown]
  - Electrocardiogram T wave inversion [Unknown]
  - Sleep disorder [Unknown]
  - Stress cardiomyopathy [Unknown]
  - Ischaemia [Unknown]
  - Thrombosis [Unknown]
  - Dyspnoea [Unknown]
  - Ventricular fibrillation [Unknown]
  - Mitral valve incompetence [Unknown]
  - Coronary artery stenosis [Unknown]
  - Blood creatine phosphokinase MB increased [Unknown]
  - Tricuspid valve incompetence [Unknown]
  - Cardiogenic shock [Unknown]
  - Acute myocardial infarction [Unknown]
  - Pain [Unknown]
  - Arterial spasm [Unknown]
  - Anxiety [Unknown]

NARRATIVE: CASE EVENT DATE: 20161031
